FAERS Safety Report 18200652 (Version 3)
Quarter: 2023Q1

REPORT INFORMATION
  Report Type: Other
  Country: JP (occurrence: JP)
  Receive Date: 20200827
  Receipt Date: 20230228
  Transmission Date: 20230418
  Serious: Yes (Hospitalization, Other)
  Sender: FDA-Public Use
  Company Number: JP-CHUGAI-A2020038862ROCHE

PATIENT
  Age: 74 Year
  Sex: Female
  Weight: 35 kg

DRUGS (3)
  1. TECENTRIQ [Suspect]
     Active Substance: ATEZOLIZUMAB
     Indication: Small cell lung cancer
     Dosage: 1200MG,ONCE IN1MONTHS
     Route: 041
     Dates: start: 20200312, end: 20200618
  2. CARBOPLATIN [Concomitant]
     Active Substance: CARBOPLATIN
     Indication: Small cell lung cancer
     Dosage: DOSAGE IS UNCERTAIN.
     Route: 041
     Dates: start: 20200120, end: 20200425
  3. ETOPOSIDE [Concomitant]
     Active Substance: ETOPOSIDE
     Indication: Small cell lung cancer
     Dosage: DOSAGE IS UNCERTAIN.
     Route: 041
     Dates: start: 20200120, end: 20200425

REACTIONS (4)
  - Acute generalised exanthematous pustulosis [Recovered/Resolved]
  - Laryngeal discomfort [Unknown]
  - Diarrhoea [Recovered/Resolved]
  - Interstitial lung disease [Not Recovered/Not Resolved]

NARRATIVE: CASE EVENT DATE: 20200401
